FAERS Safety Report 5730346-6 (Version None)
Quarter: 2008Q2

REPORT INFORMATION
  Report Type: 
  Country: None (occurrence: None)
  Receive Date: 20080430
  Receipt Date: 20080215
  Transmission Date: 20081010
  Serious: No
  Sender: FDA-Public Use
  Company Number: 2007-US-000272

PATIENT
  Age: 5 Year
  Sex: Male
  Weight: 13.6 kg

DRUGS (1)
  1. INCRELEX [Suspect]
     Indication: INSULIN-LIKE GROWTH FACTOR DECREASED
     Dosage: 17 UL, BID, SUBCUTANEOUS
     Route: 058
     Dates: start: 20070307

REACTIONS (2)
  - IRRITABILITY [None]
  - TEARFULNESS [None]
